FAERS Safety Report 21034194 (Version 1)
Quarter: 2022Q3

REPORT INFORMATION
  Report Type: Spontaneous
  Country: IN (occurrence: IN)
  Receive Date: 20220701
  Receipt Date: 20220701
  Transmission Date: 20221027
  Serious: Yes (Death)
  Sender: FDA-Public Use
  Company Number: IN-PFIZER INC-2020481359

PATIENT
  Age: 41 Year
  Sex: Female

DRUGS (7)
  1. PALBOCICLIB [Suspect]
     Active Substance: PALBOCICLIB
     Indication: Breast cancer metastatic
     Dosage: 125 MG, 1 TABLET EVENY MORNING
     Route: 048
     Dates: start: 20200509, end: 20211217
  2. PALBOCICLIB [Suspect]
     Active Substance: PALBOCICLIB
     Dosage: 125 MG OD
     Route: 048
     Dates: start: 20210527
  3. DISPERZYME [Concomitant]
     Dosage: 1 TABLET THREE TIMES A DAY
  4. ENZOFLAM [DICLOFENAC SODIUM;PARACETAMOL;SERRAPEPTASE] [Concomitant]
     Dosage: 1 TABLET TWICE A DAY - MORNING AND EVENING
  5. PAN [Concomitant]
     Dosage: 1 TABLET EVERY MORNING
  6. CALCIMAX [CALCIUM;COLECALCIFEROL;MAGNESIUM;ZINC] [Concomitant]
     Dosage: 1 TABLET EVERY MORNING
  7. LETROZOLE [Concomitant]
     Active Substance: LETROZOLE
     Dosage: UNK

REACTIONS (11)
  - Death [Fatal]
  - Neoplasm progression [Unknown]
  - Bone pain [Unknown]
  - Pain in extremity [Unknown]
  - Calcium deficiency [Unknown]
  - Inflammation [Unknown]
  - Breast pain [Unknown]
  - Skin reaction [Recovered/Resolved]
  - Weight increased [Unknown]
  - Skin hypertrophy [Unknown]
  - Skin ulcer [Unknown]

NARRATIVE: CASE EVENT DATE: 20200101
